FAERS Safety Report 8407856-6 (Version None)
Quarter: 2012Q2

REPORT INFORMATION
  Report Type: 
  Country: None (occurrence: None)
  Receive Date: 20120604
  Receipt Date: 20120530
  Transmission Date: 20120825
  Serious: Yes (Other)
  Sender: FDA-Public Use
  Company Number: US-BAYER-2012-035052

PATIENT
  Age: 30 Year
  Sex: Female
  Weight: 77.551 kg

DRUGS (2)
  1. MIRENA [Suspect]
     Indication: CONTRACEPTION
     Dosage: 20 ?G/D, CONT
     Route: 015
     Dates: start: 20120403
  2. MIRENA [Suspect]
     Indication: MENORRHAGIA

REACTIONS (2)
  - UTERINE PERFORATION [None]
  - POST PROCEDURAL DISCOMFORT [None]
